FAERS Safety Report 7300969-1 (Version None)
Quarter: 2011Q1

REPORT INFORMATION
  Report Type: 
  Country: None (occurrence: None)
  Receive Date: 20110110
  Receipt Date: 20100915
  Transmission Date: 20110831
  Serious: No
  Sender: FDA-Public Use
  Company Number: 2010IP000116

PATIENT
  Age: 66 Year
  Sex: Female

DRUGS (3)
  1. BEPREVE [Suspect]
     Indication: EYE IRRITATION
     Dosage: 1 GTT; BID; OPH
     Route: 047
     Dates: start: 20100901, end: 20100902
  2. BEPREVE [Suspect]
     Indication: DRY EYE
     Dosage: 1 GTT; BID; OPH
     Route: 047
     Dates: start: 20100901, end: 20100902
  3. SYNTHROID [Concomitant]

REACTIONS (1)
  - AURA [None]
